FAERS Safety Report 11313526 (Version 1)
Quarter: 2015Q3

REPORT INFORMATION
  Report Type: Spontaneous
  Country: US (occurrence: US)
  Receive Date: 20150727
  Receipt Date: 20150727
  Transmission Date: 20151125
  Serious: No
  Sender: FDA-Public Use
  Company Number: US-PFIZER INC-2015246745

PATIENT
  Sex: Female

DRUGS (1)
  1. TETRACYCLINE HCL [Suspect]
     Active Substance: TETRACYCLINE HYDROCHLORIDE
     Indication: ANTIBIOTIC THERAPY
     Dosage: UNK

REACTIONS (2)
  - Tooth discolouration [Unknown]
  - Tooth loss [Not Recovered/Not Resolved]
